FAERS Safety Report 10077337 (Version 2)
Quarter: 2014Q2

REPORT INFORMATION
  Report Type: Spontaneous
  Country: US (occurrence: US)
  Receive Date: 20140414
  Receipt Date: 20140414
  Transmission Date: 20141212
  Serious: No
  Sender: FDA-Public Use
  Company Number: US-BANPHARM-20131358

PATIENT
  Age: 62 Year
  Sex: Female
  Weight: 77.11 kg

DRUGS (4)
  1. ALEVE LIQUID GELS 220 MG [Suspect]
     Indication: BACK PAIN
     Dosage: 1 DF, BID,
     Route: 048
     Dates: start: 20130514
  2. CRESTOR [Concomitant]
  3. PATENOL [Concomitant]
  4. BONIVA [Concomitant]

REACTIONS (2)
  - Abdominal pain upper [Unknown]
  - Drug ineffective [Not Recovered/Not Resolved]
